FAERS Safety Report 5327245-0 (Version None)
Quarter: 2007Q2

REPORT INFORMATION
  Report Type: 
  Country: None (occurrence: None)
  Receive Date: 20070517
  Receipt Date: 20070513
  Transmission Date: 20071010
  Serious: Yes (Death)
  Sender: FDA-Public Use
  Company Number: IL-AVENTIS-200712277EU

PATIENT
  Age: 23 Year
  Sex: Female

DRUGS (1)
  1. CLEXANE [Suspect]
     Dates: start: 20070401

REACTIONS (1)
  - ISCHAEMIC STROKE [None]
